FAERS Safety Report 9309004 (Version 1)
Quarter: 2013Q2

REPORT INFORMATION
  Report Type: Spontaneous
  Country: US (occurrence: US)
  Receive Date: 20130524
  Receipt Date: 20130524
  Transmission Date: 20140414
  Serious: No
  Sender: FDA-Public Use
  Company Number: US-009507513-1305USA013184

PATIENT
  Age: 72 Year
  Sex: Female

DRUGS (4)
  1. PEGINTRON [Suspect]
     Indication: HEPATITIS C
     Dosage: 96 MICROGRAM, QW
     Route: 058
     Dates: start: 20130501
  2. THYROID [Concomitant]
  3. ESTRADIOL [Concomitant]
  4. CLONAZEPAM [Concomitant]

REACTIONS (1)
  - Thrombocytopenia [Not Recovered/Not Resolved]
